FAERS Safety Report 9630516 (Version 2)
Quarter: 2013Q4

REPORT INFORMATION
  Report Type: Report from Study
  Country: CA (occurrence: CA)
  Receive Date: 20131018
  Receipt Date: 20131018
  Transmission Date: 20140711
  Serious: Yes (Other)
  Sender: FDA-Public Use
  Company Number: CA-ROCHE-1192398

PATIENT
  Age: 50 Year
  Sex: Male
  Weight: 88.5 kg

DRUGS (7)
  1. RITUXAN [Suspect]
     Indication: RHEUMATOID ARTHRITIS
     Dosage: LAST DOSE RECEIVED ON 26/FEB/2013
     Route: 042
     Dates: start: 20130211
  2. SYNTHROID [Concomitant]
  3. CRESTOR [Concomitant]
  4. EZETROL [Concomitant]
  5. METHOTREXATE [Concomitant]
  6. FOLIC ACID [Concomitant]
  7. RASILEZ [Concomitant]

REACTIONS (4)
  - Dental caries [Unknown]
  - Infusion related reaction [Recovered/Resolved]
  - Arthralgia [Recovering/Resolving]
  - Tooth abscess [Unknown]
